FAERS Safety Report 12138451 (Version 9)
Quarter: 2021Q1

REPORT INFORMATION
  Report Type: Spontaneous
  Country: US (occurrence: US)
  Receive Date: 20160302
  Receipt Date: 20210201
  Transmission Date: 20210419
  Serious: No
  Sender: FDA-Public Use
  Company Number: US-PFIZER INC-2016122754

PATIENT
  Age: 23 Year
  Sex: Male
  Weight: 79.38 kg

DRUGS (2)
  1. CAVERJECT [Suspect]
     Active Substance: ALPROSTADIL
     Indication: ERECTILE DYSFUNCTION
     Dosage: 0.03 TO 0.07 MG 2 TO 3 TIMES FOR WEEK
     Dates: start: 1993
  2. CAVERJECT [Suspect]
     Active Substance: ALPROSTADIL
     Indication: NERVE INJURY
     Dosage: UNK

REACTIONS (4)
  - Multiple use of single-use product [Unknown]
  - Product prescribing error [Unknown]
  - Therapeutic product effect decreased [Recovered/Resolved]
  - Overdose [Unknown]

NARRATIVE: CASE EVENT DATE: 1993
